FAERS Safety Report 6155948-7 (Version None)
Quarter: 2009Q2

REPORT INFORMATION
  Report Type: 
  Country: None (occurrence: None)
  Receive Date: 20090413
  Receipt Date: 20090312
  Transmission Date: 20091009
  Serious: Yes (Death)
  Sender: FDA-Public Use
  Company Number: PERC20090041

PATIENT
  Age: 47 Year
  Sex: Female

DRUGS (5)
  1. PERCOCET [Suspect]
     Indication: PAIN
     Dates: start: 19870101
  2. OXYCONTIN [Suspect]
     Indication: PAIN
     Dates: start: 19870101
  3. ACETAMINOPHEN AND CODEINE PHOSPHATE [Suspect]
     Indication: PAIN
     Dates: start: 19870101
  4. XANAX [Suspect]
     Indication: PAIN
     Dates: start: 19870101
  5. ANTIDEPRESSANTS [Suspect]
     Dates: start: 19870101

REACTIONS (2)
  - COMPLETED SUICIDE [None]
  - MULTIPLE DRUG OVERDOSE INTENTIONAL [None]
